FAERS Safety Report 9888119 (Version 1)
Quarter: 2014Q1

REPORT INFORMATION
  Report Type: Spontaneous
  Country: US (occurrence: None)
  Receive Date: 20140210
  Receipt Date: 20140210
  Transmission Date: 20141002
  Serious: No
  Sender: FDA-Public Use
  Company Number: None

PATIENT
  Age: 67 Year
  Sex: Female
  Weight: 54.43 kg

DRUGS (2)
  1. ASACOL [Suspect]
     Indication: CROHN^S DISEASE
     Dosage: TAKEN BY MOUTH
     Dates: start: 20131130, end: 20131203
  2. ASACOL [Suspect]
     Indication: COLITIS ULCERATIVE
     Dosage: TAKEN BY MOUTH
     Dates: start: 20131130, end: 20131203

REACTIONS (4)
  - Oropharyngeal pain [None]
  - Dysphagia [None]
  - Speech disorder [None]
  - Unevaluable event [None]
